FAERS Safety Report 11496136 (Version 3)
Quarter: 2016Q4

REPORT INFORMATION
  Report Type: Report from Study
  Country: CZ (occurrence: CZ)
  Receive Date: 20150911
  Receipt Date: 20161123
  Transmission Date: 20170206
  Serious: Yes (Hospitalization)
  Sender: FDA-Public Use
  Company Number: CZ-JNJFOC-20150906594

PATIENT
  Age: 44 Year
  Sex: Female

DRUGS (5)
  1. ACIDUM FOLICUM [Concomitant]
     Active Substance: FOLIC ACID
     Route: 065
  2. DICLOFENAC DUO [Concomitant]
     Active Substance: DICLOFENAC SODIUM
     Dosage: AS NEEDED (P.R.N)
     Route: 065
  3. MTX [Concomitant]
     Active Substance: METHOTREXATE SODIUM
     Route: 065
  4. SIMPONI [Suspect]
     Active Substance: GOLIMUMAB
     Indication: RHEUMATOID ARTHRITIS
     Route: 058
     Dates: start: 20140604, end: 20150609
  5. SIMPONI [Suspect]
     Active Substance: GOLIMUMAB
     Indication: PSORIATIC ARTHROPATHY
     Route: 058
     Dates: start: 20140604, end: 20150609

REACTIONS (5)
  - Cholecystitis acute [Recovering/Resolving]
  - Pneumonia [Recovering/Resolving]
  - Arthralgia [Unknown]
  - Palpitations [Not Recovered/Not Resolved]
  - Headache [Unknown]

NARRATIVE: CASE EVENT DATE: 2015
